FAERS Safety Report 16425694 (Version 1)
Quarter: 2019Q2

REPORT INFORMATION
  Report Type: Spontaneous
  Country: US (occurrence: US)
  Receive Date: 20190613
  Receipt Date: 20190613
  Transmission Date: 20190711
  Serious: No
  Sender: FDA-Public Use
  Company Number: US-PFIZER INC-2019250317

PATIENT
  Age: 33 Year
  Sex: Female
  Weight: 77.11 kg

DRUGS (4)
  1. LYRICA CR [Suspect]
     Active Substance: PREGABALIN
     Indication: FIBROMYALGIA
     Dosage: 165 MG, 2X/DAY (2 OF 7 TABLETS EACH WHICH IS ONLY A ONE WEEK SUPPLY)
     Dates: start: 2019
  2. LYRICA CR [Suspect]
     Active Substance: PREGABALIN
     Indication: NEURALGIA
  3. LYRICA [Suspect]
     Active Substance: PREGABALIN
     Indication: FIBROMYALGIA
     Dosage: 200 MG, 3X/DAY (200 MG 3 TIMES A DAY BY MOUTH)
     Route: 048
     Dates: start: 2010
  4. LYRICA [Suspect]
     Active Substance: PREGABALIN
     Indication: NEURALGIA

REACTIONS (4)
  - Off label use [Unknown]
  - Product use issue [Unknown]
  - Depression [Unknown]
  - Weight decreased [Unknown]
